FAERS Safety Report 9575558 (Version 1)
Quarter: 2013Q4

REPORT INFORMATION
  Report Type: Spontaneous
  Country: US (occurrence: US)
  Receive Date: 20131001
  Receipt Date: 20131001
  Transmission Date: 20140711
  Serious: No
  Sender: FDA-Public Use
  Company Number: US-AMGEN-USASP2012083802

PATIENT
  Sex: Female

DRUGS (12)
  1. ENBREL [Suspect]
     Indication: RHEUMATOID ARTHRITIS
     Dosage: 50 MG, QWK
     Route: 058
  2. TRAMADOL HCL [Concomitant]
     Dosage: 50 MG, UNK
  3. HYDROXYCHLOROQUINE [Concomitant]
     Dosage: 200 MG, UNK
  4. METHOTREXATE [Concomitant]
     Dosage: 2.5 MG, UNK
  5. FOLIC ACID [Concomitant]
     Dosage: UNK
  6. ZOCOR [Concomitant]
     Dosage: 5 MG, UNK
  7. MULTIVITAMINS, PLAIN [Concomitant]
     Dosage: UNK
  8. FISH OIL [Concomitant]
     Dosage: UNK
  9. VITAMIN D3 [Concomitant]
     Dosage: 400 UNIT, UNK
  10. COQ-10 [Concomitant]
     Dosage: 10 MG, UNK
  11. CALCIUM [Concomitant]
     Dosage: 500 UNK, UNK
  12. BIOTIN [Concomitant]
     Dosage: 5 MG, UNK

REACTIONS (1)
  - Injection site pain [Unknown]
